FAERS Safety Report 6539566-4 (Version None)
Quarter: 2010Q1

REPORT INFORMATION
  Report Type: 
  Country: None (occurrence: None)
  Receive Date: 20100115
  Receipt Date: 20100108
  Transmission Date: 20100710
  Serious: Yes (Hospitalization)
  Sender: FDA-Public Use
  Company Number: B0626000A

PATIENT
  Sex: Female

DRUGS (3)
  1. AUGMENTIN '125' [Suspect]
     Dosage: 1G PER DAY
     Route: 048
     Dates: start: 20090409, end: 20090409
  2. KLACID [Suspect]
     Dosage: 300MG PER DAY
     Route: 048
     Dates: start: 20090409, end: 20090409
  3. NEXIUM [Suspect]
     Route: 065
     Dates: start: 20090409, end: 20090409

REACTIONS (4)
  - FLUSHING [None]
  - NAUSEA [None]
  - TREMOR [None]
  - VOMITING [None]
